FAERS Safety Report 17766225 (Version 4)
Quarter: 2021Q3

REPORT INFORMATION
  Report Type: Spontaneous
  Country: DE (occurrence: DE)
  Receive Date: 20200511
  Receipt Date: 20210908
  Transmission Date: 20211014
  Serious: Yes (Death, Hospitalization, Other)
  Sender: FDA-Public Use
  Company Number: NVSC2020DE120977

PATIENT
  Age: 56 Year
  Sex: Male
  Weight: 80.5 kg

DRUGS (2)
  1. DOCETAXEL. [Suspect]
     Active Substance: DOCETAXEL
     Indication: LUNG ADENOCARCINOMA
     Dosage: 1 DF, QD (LIQUID DAILY DOSE: 75 MG/M2 BODY SURFACE AREA)
     Route: 042
     Dates: start: 20200122, end: 20200122
  2. VARGATEF [Suspect]
     Active Substance: NINTEDANIB
     Indication: LUNG ADENOCARCINOMA
     Dosage: 400 MG, QD
     Route: 048
     Dates: start: 20200123, end: 20200129

REACTIONS (2)
  - Sepsis [Fatal]
  - Neutrophil count decreased [Unknown]

NARRATIVE: CASE EVENT DATE: 20200130
